FAERS Safety Report 22140905 (Version 1)
Quarter: 2023Q1

REPORT INFORMATION
  Report Type: Spontaneous
  Country: EG (occurrence: EG)
  Receive Date: 20230327
  Receipt Date: 20230327
  Transmission Date: 20230418
  Serious: Yes (Hospitalization)
  Sender: FDA-Public Use
  Company Number: EG-BAYER-2023A028787

PATIENT
  Age: 62 Year
  Sex: Male
  Weight: 80 kg

DRUGS (2)
  1. NEXAVAR [Suspect]
     Active Substance: SORAFENIB
     Indication: Hepatocellular carcinoma
     Dosage: 200 MG, QD
     Route: 048
  2. NEXAVAR [Suspect]
     Active Substance: SORAFENIB
     Indication: Hepatocellular carcinoma
     Dosage: 200 MG, QD
     Route: 048
     Dates: start: 20221227

REACTIONS (11)
  - Shock [Unknown]
  - Hypotension [Unknown]
  - Oedema [Unknown]
  - Ascites [Unknown]
  - Jaundice [Unknown]
  - Diarrhoea [Unknown]
  - International normalised ratio increased [Unknown]
  - Hepatic enzyme increased [Unknown]
  - Blood bilirubin increased [Unknown]
  - Haematuria [Unknown]
  - Off label use [None]

NARRATIVE: CASE EVENT DATE: 20221226
